FAERS Safety Report 24533468 (Version 1)
Quarter: 2024Q4

REPORT INFORMATION
  Report Type: Spontaneous
  Country: CN (occurrence: CN)
  Receive Date: 20241022
  Receipt Date: 20241022
  Transmission Date: 20250115
  Serious: Yes (Other)
  Sender: PFIZER
  Company Number: CN-PFIZER INC-PV202400135778

PATIENT
  Age: 63 Year
  Sex: Female
  Weight: 45 kg

DRUGS (1)
  1. LINEZOLID [Suspect]
     Active Substance: LINEZOLID
     Indication: Pulmonary tuberculosis
     Dosage: 0.6 G, 1X/DAY
     Route: 048
     Dates: start: 20240929, end: 202410

REACTIONS (4)
  - White blood cell count decreased [Recovering/Resolving]
  - Electrocardiogram QT prolonged [Unknown]
  - Dizziness [Unknown]
  - Off label use [Unknown]

NARRATIVE: CASE EVENT DATE: 20240929
